FAERS Safety Report 9692663 (Version 2)
Quarter: 2013Q4

REPORT INFORMATION
  Report Type: Spontaneous
  Country: AU (occurrence: AU)
  Receive Date: 20131118
  Receipt Date: 20131202
  Transmission Date: 20140711
  Serious: Yes (Hospitalization, Other)
  Sender: FDA-Public Use
  Company Number: PHHY2013AU129714

PATIENT
  Age: 61 Year
  Sex: Male

DRUGS (2)
  1. NILOTINIB [Suspect]
     Indication: CHRONIC MYELOID LEUKAEMIA
     Dosage: 300 MG, BID
  2. NILOTINIB [Suspect]
     Dosage: 150 MG, BID

REACTIONS (8)
  - Pyrexia [Unknown]
  - Pericarditis [Unknown]
  - Pleuritic pain [Not Recovered/Not Resolved]
  - Dyspnoea [Unknown]
  - Atrial fibrillation [Unknown]
  - Pleural effusion [Unknown]
  - Tachycardia [Unknown]
  - Lipase increased [Recovering/Resolving]
